FAERS Safety Report 24571998 (Version 1)
Quarter: 2024Q4

REPORT INFORMATION
  Report Type: Spontaneous
  Country: US (occurrence: None)
  Receive Date: 20241031
  Receipt Date: 20241031
  Transmission Date: 20250114
  Serious: No
  Sender: Public
  Company Number: None

PATIENT
  Age: 86 Year
  Sex: Male
  Weight: 83 kg

DRUGS (1)
  1. EMPAGLIFLOZIN [Suspect]
     Active Substance: EMPAGLIFLOZIN
     Indication: Diabetes mellitus
     Dosage: 12.50 MG DAILY ORAL ?
     Route: 048
     Dates: start: 20240307, end: 20240604

REACTIONS (2)
  - Urinary tract infection [None]
  - Urosepsis [None]

NARRATIVE: CASE EVENT DATE: 20240603
